FAERS Safety Report 9919497 (Version 2)
Quarter: 2014Q1

REPORT INFORMATION
  Report Type: Report from Study
  Country: US (occurrence: US)
  Receive Date: 20140224
  Receipt Date: 20140307
  Transmission Date: 20141002
  Serious: Yes (Hospitalization)
  Sender: FDA-Public Use
  Company Number: US-ACTELION-A-US2014-94957

PATIENT
  Age: 53 Year
  Sex: Female

DRUGS (6)
  1. TRACLEER [Suspect]
     Indication: PULMONARY ARTERIAL HYPERTENSION
     Dosage: 125 MG, BID
     Route: 048
     Dates: start: 2012
  2. CLONIDINE [Concomitant]
     Dosage: 0.2 MG, TID
  3. VITAMIN D [Concomitant]
     Dosage: 1000 U, QD
  4. PLAQUENIL [Concomitant]
     Dosage: 400 MG, QD
  5. MINOXIDIL [Concomitant]
     Dosage: 2.5 MG, QD
  6. TRAMADOL [Concomitant]
     Dosage: 50 MG, QD

REACTIONS (8)
  - Renal haemorrhage [Recovered/Resolved]
  - Retroperitoneal haemorrhage [Recovered/Resolved]
  - Anaemia [Recovered/Resolved]
  - Abdominal pain [Recovered/Resolved]
  - Packed red blood cell transfusion [Recovered/Resolved]
  - Renal failure acute [Recovered/Resolved]
  - Urinary tract infection [Recovered/Resolved]
  - Biopsy kidney [Recovered/Resolved]
